FAERS Safety Report 15394992 (Version 1)
Quarter: 2018Q3

REPORT INFORMATION
  Report Type: Spontaneous
  Country: US (occurrence: US)
  Receive Date: 20180911
  Receipt Date: 20180911
  Transmission Date: 20181010
  Serious: Yes (Hospitalization)
  Sender: FDA-Public Use
  Company Number: None

PATIENT
  Age: 54 Year
  Sex: Female
  Weight: 76.3 kg

DRUGS (3)
  1. LISINOPRIL 20 MG PO DAILY [Concomitant]
  2. FLUOXETINE 40 MG PO DAILY [Concomitant]
  3. CANNABIS OIL, IN THE FORM OF A CHEWY GUMMY PRODUCT [Suspect]
     Active Substance: CANNABIS SATIVA SEED OIL
     Indication: FIBROMYALGIA
     Route: 048
     Dates: start: 20180101, end: 20180905

REACTIONS (4)
  - Blood potassium decreased [None]
  - Headache [None]
  - Hypertension [None]
  - Pyrexia [None]

NARRATIVE: CASE EVENT DATE: 20180905
